FAERS Safety Report 4653663-X (Version None)
Quarter: 2005Q2

REPORT INFORMATION
  Report Type: 
  Country: None (occurrence: None)
  Receive Date: 20050505
  Receipt Date: 20050427
  Transmission Date: 20051028
  Serious: Yes (Other)
  Sender: FDA-Public Use
  Company Number: CA-JNJFOC-20050407109

PATIENT
  Age: 60 Year
  Sex: Male

DRUGS (1)
  1. CAELYX [Suspect]
     Indication: KAPOSI'S SARCOMA
     Route: 042

REACTIONS (1)
  - PNEUMONITIS [None]
